FAERS Safety Report 4384989-5 (Version None)
Quarter: 2004Q2

REPORT INFORMATION
  Report Type: 
  Country: None (occurrence: None)
  Receive Date: 20040625
  Receipt Date: 20040615
  Transmission Date: 20050107
  Serious: Yes (Death, Hospitalization)
  Sender: FDA-Public Use
  Company Number: SE-BRISTOL-MYERS SQUIBB COMPANY-12616694

PATIENT
  Age: 50 Year
  Sex: Male

DRUGS (1)
  1. DICLOCIL CAPS [Suspect]
     Dates: start: 20010501, end: 20010801

REACTIONS (2)
  - CHOLESTASIS [None]
  - TRANSAMINASES INCREASED [None]
